FAERS Safety Report 14466261 (Version 1)
Quarter: 2018Q1

REPORT INFORMATION
  Report Type: Spontaneous
  Country: US (occurrence: US)
  Receive Date: 20180130
  Receipt Date: 20180130
  Transmission Date: 20180509
  Serious: No
  Sender: FDA-Public Use
  Company Number: None

PATIENT
  Age: 68 Year
  Sex: Female

DRUGS (1)
  1. MAVYRET [Suspect]
     Active Substance: GLECAPREVIR\PIBRENTASVIR
     Indication: HEPATITIS C
     Dosage: 100-40MG X3 QD PO
     Route: 048
     Dates: start: 20171229

REACTIONS (5)
  - Rash pruritic [None]
  - Fatigue [None]
  - Blood glucose increased [None]
  - Vulvovaginal rash [None]
  - Vulvovaginal pruritus [None]

NARRATIVE: CASE EVENT DATE: 20180107
